FAERS Safety Report 17224326 (Version 2)
Quarter: 2020Q1

REPORT INFORMATION
  Report Type: Spontaneous
  Country: SA (occurrence: SA)
  Receive Date: 20200102
  Receipt Date: 20200107
  Transmission Date: 20200409
  Serious: Yes (Other)
  Sender: FDA-Public Use
  Company Number: SA-PFIZER INC-2019559908

PATIENT
  Age: 19 Year

DRUGS (5)
  1. TIGECYCLINE. [Suspect]
     Active Substance: TIGECYCLINE
     Indication: KLEBSIELLA INFECTION
     Dosage: UNK
  2. TIGECYCLINE. [Suspect]
     Active Substance: TIGECYCLINE
     Dosage: 100 MG, 2X/DAY
  3. COLISTIN [Suspect]
     Active Substance: COLISTIN
     Indication: KLEBSIELLA INFECTION
     Dosage: 4.5 MILLION IU, 2X/DAY
  4. MEROPENEM. [Suspect]
     Active Substance: MEROPENEM
     Indication: KLEBSIELLA INFECTION
     Dosage: UNK
  5. MEROPENEM. [Suspect]
     Active Substance: MEROPENEM
     Dosage: 2 G, 3X/DAY

REACTIONS (2)
  - Drug resistance [Unknown]
  - Drug ineffective [Unknown]
